FAERS Safety Report 5564254-0 (Version None)
Quarter: 2007Q4

REPORT INFORMATION
  Report Type: 
  Country: None (occurrence: None)
  Receive Date: 20071212
  Receipt Date: 20071127
  Transmission Date: 20080405
  Serious: Yes (Life-Threatening, Hospitalization, Other)
  Sender: FDA-Public Use
  Company Number: 164710ISR

PATIENT
  Age: 55 Year
  Sex: Male

DRUGS (3)
  1. DICLOFENAC [Suspect]
     Indication: NEURALGIA
     Dosage: 50 MG
     Dates: start: 20060101
  2. MELOXICAM [Suspect]
     Indication: NEURALGIA
     Dosage: 7.5 MG
     Dates: start: 20060101
  3. CELECOXIB [Suspect]
     Indication: NEURALGIA
     Dosage: 200 MG
     Dates: start: 20060101

REACTIONS (8)
  - FEELING ABNORMAL [None]
  - GAIT DISTURBANCE [None]
  - MALAISE [None]
  - MENTAL DISORDER [None]
  - MUSCULOSKELETAL STIFFNESS [None]
  - NEPHROLITHIASIS [None]
  - PNEUMOTHORAX [None]
  - RENAL COLIC [None]
